FAERS Safety Report 5259120-4 (Version None)
Quarter: 2007Q1

REPORT INFORMATION
  Report Type: 
  Country: None (occurrence: None)
  Receive Date: 20070308
  Receipt Date: 20070306
  Transmission Date: 20070707
  Serious: Yes (Other)
  Sender: FDA-Public Use
  Company Number: JP-JNJFOC-20060705064

PATIENT
  Age: 37 Year
  Sex: Female

DRUGS (1)
  1. ORTHO-NOVUM 1/35-28 [Suspect]
     Indication: METRORRHAGIA
     Route: 048

REACTIONS (2)
  - DRUG EXPOSURE DURING PREGNANCY [None]
  - INTRA-UTERINE DEATH [None]
